FAERS Safety Report 18963352 (Version 2)
Quarter: 2021Q1

REPORT INFORMATION
  Report Type: Spontaneous
  Country: NL (occurrence: FR)
  Receive Date: 20210303
  Receipt Date: 20210318
  Transmission Date: 20210420
  Serious: Yes (Other)
  Sender: FDA-Public Use
  Company Number: FR-FRESENIUS KABI-FK202101777

PATIENT
  Age: 87 Year
  Sex: Female

DRUGS (63)
  1. SODIUM CHLORIDE (MANUFACTURER UNKNOWN) [Suspect]
     Active Substance: SODIUM CHLORIDE
     Dosage: 100 MILLILITER AT EACH CHEMOTHERAPY CURE
     Route: 042
     Dates: start: 20200923
  2. SODIUM CHLORIDE (MANUFACTURER UNKNOWN) [Suspect]
     Active Substance: SODIUM CHLORIDE
     Dosage: 100 MILLILITER AT EACH CHEMOTHERAPY CURE
     Route: 042
     Dates: start: 20201215
  3. SODIUM CHLORIDE (MANUFACTURER UNKNOWN) [Suspect]
     Active Substance: SODIUM CHLORIDE
     Dosage: 100 MILLILITER AT EACH CHEMOTHERAPY CURE
     Route: 042
     Dates: start: 20201015
  4. SODIUM CHLORIDE (MANUFACTURER UNKNOWN) [Suspect]
     Active Substance: SODIUM CHLORIDE
     Dosage: 100 MILLILITER AT EACH CHEMOTHERAPY CURE
     Route: 042
     Dates: start: 20201201
  5. SODIUM CHLORIDE (MANUFACTURER UNKNOWN) [Suspect]
     Active Substance: SODIUM CHLORIDE
     Dosage: 100 MILLILITER AT EACH CHEMOTHERAPY CURE
     Route: 042
     Dates: start: 20201008
  6. ONDANSETRON (MANUFACTURER UNKNOWN) [Suspect]
     Active Substance: ONDANSETRON
     Dosage: 8 MILLIGRAM AT EACH CHEMOTHERAPY CURE
     Route: 042
     Dates: start: 20210126
  7. ONDANSETRON (MANUFACTURER UNKNOWN) [Suspect]
     Active Substance: ONDANSETRON
     Dosage: 8 MILLIGRAM AT EACH CHEMOTHERAPY CURE
     Route: 042
     Dates: start: 20201008
  8. METHYLPREDNISOLONE. [Suspect]
     Active Substance: METHYLPREDNISOLONE
     Dosage: 40 MILLIGRAM AT EACH CHEMOTHERAPY CURE
     Route: 042
     Dates: start: 20201215
  9. METHYLPREDNISOLONE. [Suspect]
     Active Substance: METHYLPREDNISOLONE
     Dosage: 40 MILLIGRAM AT EACH CHEMOTHERAPY CURE
     Route: 042
     Dates: start: 20200923
  10. METHYLPREDNISOLONE. [Suspect]
     Active Substance: METHYLPREDNISOLONE
     Dosage: 40 MILLIGRAM AT EACH CHEMOTHERAPY CURE
     Route: 042
     Dates: start: 20200917
  11. LEVOFOLINATE SODIUM [Suspect]
     Active Substance: LEVOLEUCOVORIN DISODIUM
     Dosage: 170 MILLIGRAM AT EACH CHEMOTHERAPY CURE
     Route: 042
     Dates: start: 20201201
  12. LEVOFOLINATE SODIUM [Suspect]
     Active Substance: LEVOLEUCOVORIN DISODIUM
     Dosage: 170 MILLIGRAM AT EACH CHEMOTHERAPY CURE
     Route: 042
     Dates: start: 20201229
  13. FLUOROURACIL SODIUM [Suspect]
     Active Substance: FLUOROURACIL SODIUM
     Indication: PANCREATIC CARCINOMA
     Dosage: 350MG AND 2000MG AT EACH CHEMOTHERAPY CURE
     Route: 042
     Dates: start: 20201015
  14. SODIUM CHLORIDE (MANUFACTURER UNKNOWN) [Suspect]
     Active Substance: SODIUM CHLORIDE
     Dosage: 100 MILLILITER AT EACH CHEMOTHERAPY CURE
     Route: 042
     Dates: start: 20200917
  15. ONDANSETRON (MANUFACTURER UNKNOWN) [Suspect]
     Active Substance: ONDANSETRON
     Indication: CHEMOTHERAPY
     Dosage: 8 MILLIGRAM AT EACH CHEMOTHERAPY CURE
     Route: 042
     Dates: start: 20210112
  16. ONDANSETRON (MANUFACTURER UNKNOWN) [Suspect]
     Active Substance: ONDANSETRON
     Dosage: 8 MILLIGRAM AT EACH CHEMOTHERAPY CURE
     Route: 042
     Dates: start: 20201201
  17. ONDANSETRON (MANUFACTURER UNKNOWN) [Suspect]
     Active Substance: ONDANSETRON
     Dosage: 8 MILLIGRAM AT EACH CHEMOTHERAPY CURE
     Route: 042
     Dates: start: 20200909
  18. ONDANSETRON (MANUFACTURER UNKNOWN) [Suspect]
     Active Substance: ONDANSETRON
     Dosage: 8 MILLIGRAM AT EACH CHEMOTHERAPY CURE
     Route: 042
     Dates: start: 20200917
  19. METHYLPREDNISOLONE. [Suspect]
     Active Substance: METHYLPREDNISOLONE
     Dosage: 40 MILLIGRAM AT EACH CHEMOTHERAPY CURE
     Route: 042
     Dates: start: 20201117
  20. LEVOFOLINATE SODIUM [Suspect]
     Active Substance: LEVOLEUCOVORIN DISODIUM
     Dosage: 170 MILLIGRAM AT EACH CHEMOTHERAPY CURE
     Route: 042
     Dates: start: 20201015
  21. FLUOROURACIL SODIUM [Suspect]
     Active Substance: FLUOROURACIL SODIUM
     Dosage: 350MG AND 2000MG AT EACH CHEMOTHERAPY CURE
     Route: 042
     Dates: start: 20201215
  22. SODIUM CHLORIDE (MANUFACTURER UNKNOWN) [Suspect]
     Active Substance: SODIUM CHLORIDE
     Dosage: 100 MILLILITER AT EACH CHEMOTHERAPY CURE
     Route: 042
     Dates: start: 20201229
  23. ONDANSETRON (MANUFACTURER UNKNOWN) [Suspect]
     Active Substance: ONDANSETRON
     Dosage: 8 MILLIGRAM AT EACH CHEMOTHERAPY CURE
     Route: 042
     Dates: start: 20201015
  24. LEVOFOLINATE SODIUM [Suspect]
     Active Substance: LEVOLEUCOVORIN DISODIUM
     Dosage: 170 MILLIGRAM AT EACH CHEMOTHERAPY CURE
     Route: 042
     Dates: start: 20201008
  25. LEVOFOLINATE SODIUM [Suspect]
     Active Substance: LEVOLEUCOVORIN DISODIUM
     Dosage: 170 MILLIGRAM AT EACH CHEMOTHERAPY CURE
     Route: 042
     Dates: start: 20201117
  26. FLUOROURACIL SODIUM [Suspect]
     Active Substance: FLUOROURACIL SODIUM
     Dosage: 350MG AND 2000MG AT EACH CHEMOTHERAPY CURE
     Route: 042
     Dates: start: 20200923
  27. FLUOROURACIL SODIUM [Suspect]
     Active Substance: FLUOROURACIL SODIUM
     Dosage: 350MG AND 2000MG AT EACH CHEMOTHERAPY CURE
     Route: 042
     Dates: start: 20210126
  28. APIXABAN [Concomitant]
     Active Substance: APIXABAN
     Indication: CARDIAC DISORDER
     Dosage: 1 DOSAGE FORM, TWO TIMES A DAY
     Route: 048
  29. PANCREAS POWDER [Concomitant]
     Indication: PRODUCT USED FOR UNKNOWN INDICATION
     Dosage: 6 DOSAGE FORM, DAILY (2 IN THE MORNING, 2 IN THE NOON, 2 IN THE EVENING)
     Route: 065
  30. SODIUM CHLORIDE (MANUFACTURER UNKNOWN) [Suspect]
     Active Substance: SODIUM CHLORIDE
     Indication: CHEMOTHERAPY
     Dosage: 100 MILLILITER AT EACH CHEMOTHERAPY CURE
     Route: 042
     Dates: start: 20210126
  31. SODIUM CHLORIDE (MANUFACTURER UNKNOWN) [Suspect]
     Active Substance: SODIUM CHLORIDE
     Dosage: 100 MILLILITER AT EACH CHEMOTHERAPY CURE
     Route: 042
     Dates: start: 20200909
  32. ONDANSETRON (MANUFACTURER UNKNOWN) [Suspect]
     Active Substance: ONDANSETRON
     Dosage: 8 MILLIGRAM AT EACH CHEMOTHERAPY CURE
     Route: 042
     Dates: start: 20201117
  33. LEVOFOLINATE SODIUM [Suspect]
     Active Substance: LEVOLEUCOVORIN DISODIUM
     Indication: CHEMOTHERAPY
     Dosage: 170 MILLIGRAM AT EACH CHEMOTHERAPY CURE
     Route: 042
     Dates: start: 20200923
  34. LEVOFOLINATE SODIUM [Suspect]
     Active Substance: LEVOLEUCOVORIN DISODIUM
     Dosage: 170 MILLIGRAM AT EACH CHEMOTHERAPY CURE
     Route: 042
     Dates: start: 20200923
  35. FLUOROURACIL SODIUM [Suspect]
     Active Substance: FLUOROURACIL SODIUM
     Dosage: 350MG AND 2000MG AT EACH CHEMOTHERAPY CURE
     Route: 042
     Dates: start: 20201117
  36. ALLOPURINOL. [Concomitant]
     Active Substance: ALLOPURINOL
     Indication: CARDIAC DISORDER
     Dosage: 1 DOSAGE FORM, ONCE A DAY
     Route: 048
  37. SODIUM CHLORIDE (MANUFACTURER UNKNOWN) [Suspect]
     Active Substance: SODIUM CHLORIDE
     Dosage: 100 MILLILITER AT EACH CHEMOTHERAPY CURE
     Route: 042
     Dates: start: 20201117
  38. SODIUM CHLORIDE (MANUFACTURER UNKNOWN) [Suspect]
     Active Substance: SODIUM CHLORIDE
     Dosage: 100 MILLILITER AT EACH CHEMOTHERAPY CURE
     Route: 042
     Dates: start: 20210112
  39. METHYLPREDNISOLONE. [Suspect]
     Active Substance: METHYLPREDNISOLONE
     Indication: CHEMOTHERAPY
     Dosage: 40 MILLIGRAM AT EACH CHEMOTHERAPY CURE
     Route: 042
     Dates: start: 20201229
  40. METHYLPREDNISOLONE. [Suspect]
     Active Substance: METHYLPREDNISOLONE
     Dosage: 40 MILLIGRAM AT EACH CHEMOTHERAPY CURE
     Route: 042
     Dates: start: 20210126
  41. METHYLPREDNISOLONE. [Suspect]
     Active Substance: METHYLPREDNISOLONE
     Dosage: 40 MILLIGRAM AT EACH CHEMOTHERAPY CURE
     Route: 042
     Dates: start: 20201201
  42. FLUOROURACIL SODIUM [Suspect]
     Active Substance: FLUOROURACIL SODIUM
     Dosage: 350MG AND 2000MG AT EACH CHEMOTHERAPY CURE
     Route: 042
     Dates: start: 20201201
  43. FLUOROURACIL SODIUM [Suspect]
     Active Substance: FLUOROURACIL SODIUM
     Dosage: 350MG AND 2000MG AT EACH CHEMOTHERAPY CURE
     Route: 042
     Dates: start: 20200917
  44. FLUOROURACIL SODIUM [Suspect]
     Active Substance: FLUOROURACIL SODIUM
     Dosage: 350MG AND 2000MG AT EACH CHEMOTHERAPY CURE
     Route: 042
     Dates: start: 20201008
  45. FUROSEMIDE. [Concomitant]
     Active Substance: FUROSEMIDE
     Indication: CARDIAC DISORDER
     Dosage: 1 DOSAGE FORM, ONCE A DAY
     Route: 048
  46. ONDANSETRON (MANUFACTURER UNKNOWN) [Suspect]
     Active Substance: ONDANSETRON
     Dosage: 8 MILLIGRAM AT EACH CHEMOTHERAPY CURE
     Route: 042
     Dates: start: 20201215
  47. ONDANSETRON (MANUFACTURER UNKNOWN) [Suspect]
     Active Substance: ONDANSETRON
     Dosage: 8 MILLIGRAM AT EACH CHEMOTHERAPY CURE
     Route: 042
     Dates: start: 20200923
  48. METHYLPREDNISOLONE. [Suspect]
     Active Substance: METHYLPREDNISOLONE
     Dosage: 40 MILLIGRAM AT EACH CHEMOTHERAPY CURE
     Route: 042
     Dates: start: 20201008
  49. METHYLPREDNISOLONE. [Suspect]
     Active Substance: METHYLPREDNISOLONE
     Dosage: 40 MILLIGRAM AT EACH CHEMOTHERAPY CURE
     Route: 042
     Dates: start: 20210112
  50. LEVOFOLINATE SODIUM [Suspect]
     Active Substance: LEVOLEUCOVORIN DISODIUM
     Dosage: 170 MILLIGRAM AT EACH CHEMOTHERAPY CURE
     Route: 042
     Dates: start: 20200909
  51. LEVOFOLINATE SODIUM [Suspect]
     Active Substance: LEVOLEUCOVORIN DISODIUM
     Dosage: 170 MILLIGRAM AT EACH CHEMOTHERAPY CURE
     Route: 042
     Dates: start: 20201215
  52. FLUOROURACIL SODIUM [Suspect]
     Active Substance: FLUOROURACIL SODIUM
     Dosage: 350MG AND 2000MG AT EACH CHEMOTHERAPY CURE
     Route: 042
     Dates: start: 20210112
  53. PANTOPRAZOLE SODIUM SESQUIHYDRATE [Concomitant]
     Active Substance: PANTOPRAZOLE SODIUM
     Indication: GASTROINTESTINAL DISORDER
     Dosage: 1 DOSAGE FORM, ONCE A DAY IN THE EVENING
     Route: 048
  54. PERINDOPRIL ERBUMINE. [Concomitant]
     Active Substance: PERINDOPRIL ERBUMINE
     Indication: CARDIAC DISORDER
     Dosage: 1 DOSAGE FORM, ONCE A DAY
     Route: 048
  55. ONDANSETRON (MANUFACTURER UNKNOWN) [Suspect]
     Active Substance: ONDANSETRON
     Dosage: 8 MILLIGRAM AT EACH CHEMOTHERAPY CURE
     Route: 042
     Dates: start: 20201229
  56. METHYLPREDNISOLONE. [Suspect]
     Active Substance: METHYLPREDNISOLONE
     Dosage: 40 MILLIGRAM AT EACH CHEMOTHERAPY CURE
     Route: 042
     Dates: start: 20201015
  57. LEVOFOLINATE SODIUM [Suspect]
     Active Substance: LEVOLEUCOVORIN DISODIUM
     Dosage: 170 MILLIGRAM AT EACH CHEMOTHERAPY CURE
     Route: 042
     Dates: start: 20210126
  58. FLUOROURACIL SODIUM [Suspect]
     Active Substance: FLUOROURACIL SODIUM
     Dosage: 350MG AND 2000MG AT EACH CHEMOTHERAPY CURE
     Route: 042
     Dates: start: 20200909
  59. FLUOROURACIL SODIUM [Suspect]
     Active Substance: FLUOROURACIL SODIUM
     Dosage: 350MG AND 2000MG AT EACH CHEMOTHERAPY CURE
     Route: 042
     Dates: start: 20201229
  60. AMIODARONE HYDROCHLORIDE. [Suspect]
     Active Substance: AMIODARONE HYDROCHLORIDE
     Indication: ARRHYTHMIA
     Dosage: 200 MG
     Route: 048
     Dates: start: 202011
  61. METHYLPREDNISOLONE. [Suspect]
     Active Substance: METHYLPREDNISOLONE
     Dosage: 40 MILLIGRAM AT EACH CHEMOTHERAPY CURE
     Route: 042
     Dates: start: 20200909
  62. LEVOFOLINATE SODIUM [Suspect]
     Active Substance: LEVOLEUCOVORIN DISODIUM
     Dosage: 170 MILLIGRAM AT EACH CHEMOTHERAPY CURE
     Route: 042
     Dates: start: 20210112
  63. LEVOFOLINATE SODIUM [Suspect]
     Active Substance: LEVOLEUCOVORIN DISODIUM
     Dosage: 170 MILLIGRAM AT EACH CHEMOTHERAPY CURE
     Route: 042
     Dates: start: 20200917

REACTIONS (11)
  - Vision blurred [Recovered/Resolved]
  - Labelled drug-drug interaction issue [Unknown]
  - Crying [Recovered/Resolved]
  - Fatigue [Not Recovered/Not Resolved]
  - Aphasia [Recovered/Resolved]
  - Tremor [Recovered/Resolved]
  - Feeling abnormal [Recovered/Resolved]
  - Gait inability [Recovered/Resolved]
  - Seizure [Recovered/Resolved]
  - Dyspnoea [Recovered/Resolved]
  - Anxiety [Recovered/Resolved]

NARRATIVE: CASE EVENT DATE: 20201117
